FAERS Safety Report 16883349 (Version 6)
Quarter: 2020Q1

REPORT INFORMATION
  Report Type: Spontaneous
  Country: US (occurrence: US)
  Receive Date: 20191004
  Receipt Date: 20200323
  Transmission Date: 20200409
  Serious: Yes (Hospitalization)
  Sender: FDA-Public Use
  Company Number: US-SAREPTA THERAPEUTICS INC.-SRP2019-000552

PATIENT
  Age: 3 Year
  Sex: Male
  Weight: 16 kg

DRUGS (1)
  1. EXONDYS 51 [Suspect]
     Active Substance: ETEPLIRSEN
     Indication: DUCHENNE MUSCULAR DYSTROPHY
     Dosage: 30 MG/KG/WEEKLY
     Route: 042
     Dates: start: 20190319

REACTIONS (2)
  - Coagulation factor V level abnormal [Unknown]
  - Foot fracture [Recovered/Resolved]

NARRATIVE: CASE EVENT DATE: 20190927
